FAERS Safety Report 6253544-4 (Version None)
Quarter: 2009Q3

REPORT INFORMATION
  Report Type: 
  Country: None (occurrence: None)
  Receive Date: 20090701
  Receipt Date: 20090629
  Transmission Date: 20100115
  Serious: Yes (Hospitalization)
  Sender: FDA-Public Use
  Company Number: US-AMGEN-KDL350711

PATIENT
  Sex: Female
  Weight: 79.5 kg

DRUGS (3)
  1. PROCRIT [Suspect]
     Indication: MYELODYSPLASTIC SYNDROME
     Dates: start: 19990801
  2. UNSPECIFIED ANTIHYPERTENSIVE AGENT [Concomitant]
  3. LEVOTHYROXINE SODIUM [Concomitant]

REACTIONS (5)
  - ARTHRALGIA [None]
  - BLOOD COUNT ABNORMAL [None]
  - HIP ARTHROPLASTY [None]
  - OEDEMA PERIPHERAL [None]
  - SENSATION OF HEAVINESS [None]
